FAERS Safety Report 5052119-2 (Version None)
Quarter: 2006Q3

REPORT INFORMATION
  Report Type: 
  Country: None (occurrence: None)
  Receive Date: 20060711
  Receipt Date: 20060705
  Transmission Date: 20061208
  Serious: Yes (Death, Hospitalization)
  Sender: FDA-Public Use
  Company Number: 200610610BFR

PATIENT
  Age: 65 Year
  Sex: Male

DRUGS (13)
  1. SORAFENIB [Suspect]
     Indication: RENAL CELL CARCINOMA STAGE UNSPECIFIED
     Dosage: 400 MG BID ORAL
     Route: 048
     Dates: start: 20060103, end: 20060504
  2. SORAFENIB [Suspect]
     Indication: RENAL CELL CARCINOMA STAGE UNSPECIFIED
     Dosage: 400 MG BID ORAL
     Route: 048
     Dates: start: 20060519, end: 20060614
  3. ACETAMINOPHEN [Concomitant]
  4. IMODIUM [Concomitant]
  5. TIORFAN [Concomitant]
  6. LOPERAMIDE [Concomitant]
  7. CLAMOXYL [Concomitant]
  8. TOPALGIC [Concomitant]
  9. RIVOTRIL [Concomitant]
  10. PRIMPERAN TAB [Concomitant]
  11. HALDOL [Concomitant]
  12. NON STEROID ANTI-INFLAMMATORY [Concomitant]
  13. CORTICOSTEROIDS [Concomitant]

REACTIONS (3)
  - CONFUSIONAL STATE [None]
  - MALIGNANT NEOPLASM PROGRESSION [None]
  - RENAL CELL CARCINOMA STAGE UNSPECIFIED [None]
